FAERS Safety Report 21082715 (Version 1)
Quarter: 2022Q3

REPORT INFORMATION
  Report Type: Spontaneous
  Country: DE (occurrence: DE)
  Receive Date: 20220714
  Receipt Date: 20220714
  Transmission Date: 20221027
  Serious: Yes (Other)
  Sender: FDA-Public Use
  Company Number: DE-NOVARTISPH-NVSC2022DE159395

PATIENT
  Sex: Female

DRUGS (3)
  1. NEVANAC [Suspect]
     Active Substance: NEPAFENAC
     Indication: Product used for unknown indication
     Dosage: UNK
     Route: 047
  2. NEVANAC [Suspect]
     Active Substance: NEPAFENAC
     Dosage: UNK
     Route: 062
  3. DICLOFENAC [Concomitant]
     Active Substance: DICLOFENAC
     Indication: Product used for unknown indication
     Dosage: UNK
     Route: 065

REACTIONS (6)
  - Eye injury [Unknown]
  - Skin fissures [Unknown]
  - Product deposit [Unknown]
  - Wrong technique in product usage process [Unknown]
  - Incorrect dose administered [Unknown]
  - Incorrect route of product administration [Unknown]
